FAERS Safety Report 10177821 (Version 1)
Quarter: 2014Q2

REPORT INFORMATION
  Report Type: Spontaneous
  Country: US (occurrence: US)
  Receive Date: 20140516
  Receipt Date: 20140516
  Transmission Date: 20141212
  Serious: No
  Sender: FDA-Public Use
  Company Number: US-SA-2013SA109976

PATIENT
  Age: 83 Year
  Sex: Male
  Weight: 74.84 kg

DRUGS (2)
  1. SOLOSTAR [Suspect]
     Indication: TYPE 2 DIABETES MELLITUS
  2. APIDRA SOLOSTAR [Suspect]
     Indication: TYPE 2 DIABETES MELLITUS
     Dosage: DOSE 7-9 UNITS,TAKEN FROM- 1 AND HALF TO TWO YEARS
     Route: 058

REACTIONS (2)
  - Malaise [Recovered/Resolved]
  - Blood glucose increased [Recovered/Resolved]
